FAERS Safety Report 5441182-2 (Version None)
Quarter: 2007Q3

REPORT INFORMATION
  Report Type: 
  Country: None (occurrence: None)
  Receive Date: 20070901
  Receipt Date: 20070820
  Transmission Date: 20080115
  Serious: Yes (Hospitalization)
  Sender: FDA-Public Use
  Company Number: BR-PFIZER INC-2007070104

PATIENT
  Sex: Female

DRUGS (6)
  1. SILDENAFIL (PAH) [Suspect]
     Indication: PULMONARY HYPERTENSION
     Route: 048
  2. LASIX [Concomitant]
  3. ALDACTONE [Concomitant]
     Route: 048
  4. BEROTEC [Concomitant]
  5. ATROVENT [Concomitant]
     Route: 055
  6. ALL OTHER THERAPEUTIC PRODUCTS [Concomitant]

REACTIONS (1)
  - PNEUMONIA [None]
